FAERS Safety Report 18947455 (Version 4)
Quarter: 2021Q2

REPORT INFORMATION
  Report Type: Spontaneous
  Country: US (occurrence: US)
  Receive Date: 20210226
  Receipt Date: 20210525
  Transmission Date: 20210717
  Serious: Yes (Other)
  Sender: FDA-Public Use
  Company Number: US-TAKEDA-2021TUS012544

PATIENT
  Age: 50 Year
  Sex: Female
  Weight: 67 kg

DRUGS (7)
  1. NINLARO [Suspect]
     Active Substance: IXAZOMIB CITRATE
     Indication: ACUTE MONOCYTIC LEUKAEMIA (IN REMISSION)
     Dosage: 4 MILLIGRAM
     Route: 048
     Dates: start: 20210304
  2. NINLARO [Suspect]
     Active Substance: IXAZOMIB CITRATE
     Dosage: 2.3 MILLIGRAM
     Route: 048
     Dates: end: 20210423
  3. GABAPENTIN. [Concomitant]
     Active Substance: GABAPENTIN
  4. MORPHINE [MORPHINE SULFATE] [Concomitant]
     Indication: ACUTE MONOCYTIC LEUKAEMIA
  5. TOPROL XL [Concomitant]
     Active Substance: METOPROLOL SUCCINATE
  6. NINLARO [Suspect]
     Active Substance: IXAZOMIB CITRATE
     Indication: CHRONIC GRAFT VERSUS HOST DISEASE
     Dosage: 3 MILLIGRAM
     Route: 048
  7. VELCADE [Suspect]
     Active Substance: BORTEZOMIB
     Indication: ACUTE MONOCYTIC LEUKAEMIA (IN REMISSION)
     Dosage: 2.2 MILLIGRAM
     Route: 058
     Dates: end: 2021

REACTIONS (6)
  - Platelet count decreased [Recovering/Resolving]
  - Vomiting [Recovered/Resolved]
  - Off label use [Unknown]
  - Nausea [Unknown]
  - Diarrhoea [Recovered/Resolved]
  - Thrombocytopenia [Unknown]

NARRATIVE: CASE EVENT DATE: 20210308
